FAERS Safety Report 20867882 (Version 1)
Quarter: 2022Q2

REPORT INFORMATION
  Report Type: Spontaneous
  Country: CN (occurrence: CN)
  Receive Date: 20220524
  Receipt Date: 20220524
  Transmission Date: 20220721
  Serious: Yes (Other)
  Sender: FDA-Public Use
  Company Number: CN-ELI_LILLY_AND_COMPANY-CN202205005279

PATIENT
  Age: 53 Year
  Sex: Female
  Weight: 60 kg

DRUGS (6)
  1. ABEMACICLIB [Suspect]
     Active Substance: ABEMACICLIB
     Indication: Breast cancer
     Dosage: 100 MG, BID
     Route: 048
     Dates: start: 20220315, end: 20220410
  2. ABEMACICLIB [Suspect]
     Active Substance: ABEMACICLIB
     Dosage: 50 MG, BID
     Route: 048
     Dates: start: 20220419
  3. FULVESTRANT [Concomitant]
     Active Substance: FULVESTRANT
     Indication: Breast cancer
     Dosage: 500 MG, OTHER (Q4W)
     Route: 030
     Dates: start: 20220315
  4. AMLODIPINE BESYLATE [Concomitant]
     Active Substance: AMLODIPINE BESYLATE
     Indication: Blood pressure increased
     Dosage: 5 MG, DAILY
     Route: 048
     Dates: start: 20220301, end: 20220428
  5. ZHEN QI FU ZHENG [Concomitant]
     Indication: Immune enhancement therapy
     Dosage: 5 MG, BID
     Route: 048
     Dates: start: 20220315, end: 20220422
  6. INSULIN ASPART 30 [Concomitant]
     Indication: Blood glucose increased
     Dosage: 14 INTERNATIONAL UNIT, BID
     Route: 058
     Dates: start: 20220301, end: 20220428

REACTIONS (3)
  - Myelosuppression [Recovering/Resolving]
  - White blood cell count decreased [Recovering/Resolving]
  - Diarrhoea [Recovering/Resolving]

NARRATIVE: CASE EVENT DATE: 20220318
